FAERS Safety Report 9468853 (Version 2)
Quarter: 2013Q3

REPORT INFORMATION
  Report Type: Spontaneous
  Country: CA (occurrence: CA)
  Receive Date: 20130821
  Receipt Date: 20130821
  Transmission Date: 20140515
  Serious: Yes (Hospitalization)
  Sender: FDA-Public Use
  Company Number: PHHY2012CA064164

PATIENT
  Age: 55 Year
  Sex: Female

DRUGS (4)
  1. CEFTAZIDIME [Suspect]
  2. VANCOMYCIN [Suspect]
  3. CEFTRIAXONE [Suspect]
  4. MEROPENEM [Concomitant]

REACTIONS (8)
  - Drug reaction with eosinophilia and systemic symptoms [Recovered/Resolved]
  - Rash maculo-papular [Recovered/Resolved]
  - Pyrexia [Recovered/Resolved]
  - Histiocytosis haematophagic [Recovered/Resolved]
  - Bicytopenia [Recovered/Resolved]
  - Hypofibrinogenaemia [Recovered/Resolved]
  - Acute hepatic failure [Recovered/Resolved]
  - Renal failure acute [Recovered/Resolved]
